FAERS Safety Report 4617177-5 (Version None)
Quarter: 2005Q1

REPORT INFORMATION
  Report Type: 
  Country: None (occurrence: None)
  Receive Date: 20050323
  Receipt Date: 20050311
  Transmission Date: 20050727
  Serious: Yes (Hospitalization)
  Sender: FDA-Public Use
  Company Number: FR-GLAXOSMITHKLINE-B0375106A

PATIENT
  Age: 43 Year
  Sex: Male

DRUGS (7)
  1. AUGMENTIN '125' [Suspect]
     Dosage: 2G PER DAY
     Route: 048
     Dates: start: 20040826, end: 20040903
  2. FLAGYL [Suspect]
     Indication: HYPERTHERMIA
     Route: 042
     Dates: start: 20041004, end: 20041010
  3. OFLOCET [Suspect]
     Route: 042
     Dates: start: 20041004, end: 20041010
  4. IMUREL [Suspect]
     Dosage: 125MG PER DAY
     Route: 048
     Dates: start: 20040921, end: 20050105
  5. CORTICOTHERAPY [Concomitant]
     Route: 042
  6. CORTICOTHERAPY [Concomitant]
     Route: 048
  7. PENTASA [Concomitant]
     Route: 065
     Dates: start: 20040909, end: 20040921

REACTIONS (3)
  - ALANINE AMINOTRANSFERASE INCREASED [None]
  - BLOOD ALKALINE PHOSPHATASE INCREASED [None]
  - HYPERTHERMIA [None]
